FAERS Safety Report 6577852-2 (Version None)
Quarter: 2010Q1

REPORT INFORMATION
  Report Type: 
  Country: None (occurrence: None)
  Receive Date: 20100211
  Receipt Date: 20100208
  Transmission Date: 20100710
  Serious: Yes (Other)
  Sender: FDA-Public Use
  Company Number: CH-ROCHE-682614

PATIENT
  Sex: Female
  Weight: 62 kg

DRUGS (4)
  1. HERCEPTIN [Suspect]
     Indication: BREAST CANCER
     Route: 042
     Dates: start: 20090101
  2. RISPERDAL [Concomitant]
  3. EFFEXOR [Concomitant]
  4. QUILONORM [Concomitant]

REACTIONS (1)
  - TREMOR [None]
